FAERS Safety Report 11751861 (Version 1)
Quarter: 2015Q4

REPORT INFORMATION
  Report Type: Spontaneous
  Country: FR (occurrence: FR)
  Receive Date: 20151118
  Receipt Date: 20151118
  Transmission Date: 20160304
  Serious: Yes (Hospitalization, Other)
  Sender: FDA-Public Use
  Company Number: FR-ASTRAZENECA-2015SF10223

PATIENT
  Age: 66 Year
  Sex: Female

DRUGS (4)
  1. ZOMIG [Suspect]
     Active Substance: ZOLMITRIPTAN
     Dosage: AS REQUIRED
     Route: 048
  2. SEGLOR [Suspect]
     Active Substance: DIHYDROERGOTAMINE MESYLATE
     Indication: MIGRAINE
     Route: 048
     Dates: start: 1995, end: 1995
  3. NOCERTONE [Suspect]
     Active Substance: OXETORONE
     Indication: MIGRAINE
     Route: 048
  4. XARELTO [Suspect]
     Active Substance: RIVAROXABAN
     Dosage: AS REQUIRED
     Route: 048
     Dates: end: 20151016

REACTIONS (11)
  - Pulmonary arterial hypertension [Not Recovered/Not Resolved]
  - Pulmonary hypoperfusion [Unknown]
  - Palpitations [Unknown]
  - Dyspnoea [Not Recovered/Not Resolved]
  - Ventricular hypokinesia [Unknown]
  - Right ventricular hypertrophy [Unknown]
  - Arterial wall hypertrophy [Unknown]
  - Pulmonary artery dilatation [Unknown]
  - Dilatation ventricular [Unknown]
  - Pulmonary mass [Unknown]
  - Hypoventilation [Unknown]

NARRATIVE: CASE EVENT DATE: 201403
